FAERS Safety Report 9291300 (Version 2)
Quarter: 2013Q4

REPORT INFORMATION
  Report Type: Spontaneous
  Country: US (occurrence: US)
  Receive Date: 20130515
  Receipt Date: 20131105
  Transmission Date: 20140711
  Serious: Yes (Hospitalization)
  Sender: FDA-Public Use
  Company Number: US-B.I. PHARMACEUTICALS,INC./RIDGEFIELD-2013-BI-13321BP

PATIENT
  Age: 67 Year
  Sex: Female
  Weight: 99.79 kg

DRUGS (17)
  1. PRADAXA [Suspect]
     Indication: ANTICOAGULANT THERAPY
     Dosage: 300 MG
     Dates: start: 20110714, end: 20111110
  2. PRADAXA [Suspect]
     Indication: ATRIAL FIBRILLATION
  3. ALTACE [Concomitant]
     Dosage: 10 MG
     Route: 048
  4. AMARYL [Concomitant]
  5. AMLODIPINE [Concomitant]
     Dosage: 10 MG
     Route: 048
  6. BUMEX [Concomitant]
  7. CARVEDILOL [Concomitant]
     Dosage: 25 MG
  8. MULTIVITAMIN [Concomitant]
  9. FOLIC ACID [Concomitant]
  10. LANTUS [Concomitant]
     Dosage: 5 U
     Route: 058
  11. LIPITOR [Concomitant]
     Dosage: 40 MG
  12. METOLAZONE [Concomitant]
  13. OXYGEN [Concomitant]
  14. POTASSIUM CHLORIDE [Concomitant]
     Dosage: 20 MEQ
  15. PRILOSEC [Concomitant]
     Dosage: 20 MG
  16. SYNTHROID [Concomitant]
     Dosage: 150 MCG
     Route: 048
  17. ALBUTEROL INHALER [Concomitant]
     Indication: DYSPNOEA

REACTIONS (3)
  - Upper gastrointestinal haemorrhage [Unknown]
  - Coagulopathy [Unknown]
  - Renal failure acute [Unknown]
